FAERS Safety Report 17124101 (Version 1)
Quarter: 2019Q4

REPORT INFORMATION
  Report Type: Spontaneous
  Country: DE (occurrence: DE)
  Receive Date: 20191206
  Receipt Date: 20191206
  Transmission Date: 20200122
  Serious: Yes (Disabling)
  Sender: FDA-Public Use
  Company Number: DE-MYLANLABS-2019M1119487

PATIENT
  Age: 53 Year
  Sex: Female
  Weight: 93 kg

DRUGS (5)
  1. ZIPRASIDONE. [Suspect]
     Active Substance: ZIPRASIDONE
     Indication: SCHIZOPHRENIA
     Dosage: UNK
     Route: 048
  2. ZIPRASIDONE. [Suspect]
     Active Substance: ZIPRASIDONE
     Indication: BORDERLINE PERSONALITY DISORDER
     Dosage: 80 MILLIGRAM, QD
     Route: 048
     Dates: start: 2016
  3. ZIPRASIDONE. [Suspect]
     Active Substance: ZIPRASIDONE
     Indication: INJURY
     Dosage: UNK
     Route: 048
  4. QUETIAPINE. [Suspect]
     Active Substance: QUETIAPINE
     Indication: BORDERLINE PERSONALITY DISORDER
     Dosage: 50 MILLIGRAM, QD
     Route: 065
  5. MELPERONE [Concomitant]
     Active Substance: MELPERONE
     Indication: BORDERLINE PERSONALITY DISORDER
     Dosage: 50 - 100 MG
     Route: 065

REACTIONS (1)
  - Blepharospasm [Not Recovered/Not Resolved]

NARRATIVE: CASE EVENT DATE: 201805
